APPROVED DRUG PRODUCT: MICRONASE
Active Ingredient: GLYBURIDE
Strength: 5MG **Federal Register determination that product was not discontinued or withdrawn for safety or effectiveness reasons**
Dosage Form/Route: TABLET;ORAL
Application: N017498 | Product #003
Applicant: PFIZER INC
Approved: May 1, 1984 | RLD: Yes | RS: No | Type: DISCN